FAERS Safety Report 9882087 (Version 1)
Quarter: 2014Q1

REPORT INFORMATION
  Report Type: Report from Study
  Country: BR (occurrence: BR)
  Receive Date: 20140207
  Receipt Date: 20140207
  Transmission Date: 20141002
  Serious: Yes (Death, Hospitalization)
  Sender: FDA-Public Use
  Company Number: PHHY2014BR014416

PATIENT
  Sex: Female
  Weight: 65 kg

DRUGS (5)
  1. DIOVAN [Suspect]
     Indication: BLOOD PRESSURE FLUCTUATION
     Dosage: 1 DF, (80 MG)
  2. DIOVAN [Suspect]
     Dosage: 1 DF, (160MG)
  3. DIOVAN [Suspect]
     Dosage: 1 DF, (320 MG) DAILY
     Route: 048
  4. SUSTRATE [Concomitant]
     Indication: CARDIAC DISORDER
     Dosage: 160 MG, UNK
  5. BETADINE [Concomitant]
     Indication: LABYRINTHITIS
     Dosage: 24 MG, UNK

REACTIONS (5)
  - Lung infection [Fatal]
  - Septic shock [Fatal]
  - Pneumonia aspiration [Fatal]
  - Hypertension [Fatal]
  - Diabetes mellitus [Fatal]
